FAERS Safety Report 22609184 (Version 1)
Quarter: 2023Q2

REPORT INFORMATION
  Report Type: Spontaneous
  Country: US (occurrence: None)
  Receive Date: 20230615
  Receipt Date: 20230615
  Transmission Date: 20230722
  Serious: No
  Sender: FDA-Public Use
  Company Number: None

PATIENT
  Sex: Female

DRUGS (1)
  1. AMBRISENTAN [Suspect]
     Active Substance: AMBRISENTAN
     Indication: Pulmonary arterial hypertension
     Dosage: FREQUENCY : DAILY;?
     Route: 048

REACTIONS (12)
  - Asthenia [None]
  - Hypotension [None]
  - Cardiac failure congestive [None]
  - Chest pain [None]
  - Dyspnoea [None]
  - Dizziness [None]
  - Blood iron decreased [None]
  - Loss of personal independence in daily activities [None]
  - Fatigue [None]
  - Hypersomnia [None]
  - Decreased appetite [None]
  - Pulmonary arterial pressure decreased [None]
